FAERS Safety Report 11536416 (Version 1)
Quarter: 2015Q3

REPORT INFORMATION
  Report Type: Spontaneous
  Country: FR (occurrence: FR)
  Receive Date: 20150922
  Receipt Date: 20150922
  Transmission Date: 20151125
  Serious: Yes (Hospitalization)
  Sender: FDA-Public Use
  Company Number: FR-PFIZER INC-2015307909

PATIENT
  Age: 19 Year
  Sex: Male

DRUGS (6)
  1. FUCIDINE /00065701/ [Suspect]
     Active Substance: FUSIDIC ACID
     Indication: SEBORRHOEIC DERMATITIS
     Dosage: 500 MG, 2X/DAY
     Route: 048
     Dates: start: 20150803, end: 20150829
  2. DALACINE [Suspect]
     Active Substance: CLINDAMYCIN HYDROCHLORIDE
     Indication: FOLLICULITIS
  3. FUCIDINE /00065701/ [Suspect]
     Active Substance: FUSIDIC ACID
     Indication: FOLLICULITIS
  4. FLAMMAZINE [Suspect]
     Active Substance: SILVER SULFADIAZINE
     Indication: SEBORRHOEIC DERMATITIS
     Dosage: UNK
     Route: 003
     Dates: start: 20150803
  5. FLAMMAZINE [Suspect]
     Active Substance: SILVER SULFADIAZINE
     Indication: FOLLICULITIS
  6. DALACINE [Suspect]
     Active Substance: CLINDAMYCIN HYDROCHLORIDE
     Indication: SEBORRHOEIC DERMATITIS
     Dosage: UNK
     Route: 003
     Dates: start: 20150803

REACTIONS (4)
  - Thrombocytopenia [Recovering/Resolving]
  - Epistaxis [Recovered/Resolved]
  - Purpura [Recovering/Resolving]
  - Gingival bleeding [Recovering/Resolving]

NARRATIVE: CASE EVENT DATE: 20150824
